FAERS Safety Report 11364025 (Version 1)
Quarter: 2015Q3

REPORT INFORMATION
  Report Type: Spontaneous
  Country: US (occurrence: None)
  Receive Date: 20150810
  Receipt Date: 20150810
  Transmission Date: 20151125
  Serious: Yes (Disabling, Other)
  Sender: FDA-Public Use
  Company Number: None

PATIENT
  Age: 29 Year
  Sex: Female
  Weight: 72.58 kg

DRUGS (1)
  1. ZOLOFT [Suspect]
     Active Substance: SERTRALINE HYDROCHLORIDE
     Indication: POSTPARTUM DEPRESSION
     Dosage: 3 PILLS ONCE DAILY TAKEN BY MOUTH
     Route: 048

REACTIONS (5)
  - Activities of daily living impaired [None]
  - Swollen tongue [None]
  - Dental caries [None]
  - Pain [None]
  - Tongue ulceration [None]

NARRATIVE: CASE EVENT DATE: 20150806
